FAERS Safety Report 12800651 (Version 1)
Quarter: 2016Q3

REPORT INFORMATION
  Report Type: Report from Study
  Country: IT (occurrence: IT)
  Receive Date: 20160930
  Receipt Date: 20160930
  Transmission Date: 20161109
  Serious: Yes (Other)
  Sender: FDA-Public Use
  Company Number: IT-BAXALTA-2016BLT007064

PATIENT
  Age: 68 Year
  Sex: Male

DRUGS (2)
  1. HEMOFIL M [Suspect]
     Active Substance: ANTIHEMOPHILIC FACTOR HUMAN
     Indication: FACTOR VIII DEFICIENCY
     Dosage: UNK
     Route: 065
  2. HEMOFIL M [Suspect]
     Active Substance: ANTIHEMOPHILIC FACTOR HUMAN
     Indication: CEREBRAL HAEMORRHAGE

REACTIONS (3)
  - Factor VIII inhibition [Unknown]
  - Haematuria [Unknown]
  - Anaemia [Unknown]
